FAERS Safety Report 8054379 (Version 4)
Quarter: 2012Q4

REPORT INFORMATION
  Report Type: 
  Country: JP (occurrence: JP)
  Receive Date: 20110726
  Receipt Date: 20121018
  Transmission Date: 20130627
  Serious: Yes (Hospitalization, Disabling, Congenital Anomaly)
  Sender: FDA-Public Use
  Company Number: PHHY2011JP63873

PATIENT
  Age: 0 Year
  Sex: Female
  Weight: 2 kg

DRUGS (3)
  1. TEGRETOL [Suspect]
     Indication: INFANTILE SPASMS
     Dosage: 1200 mg, Daily
     Route: 064
  2. PHENOBARBITAL [Suspect]
     Indication: INFANTILE SPASMS
     Dosage: 140 mg, Daily
     Route: 064
  3. DEPAKENE-R [Suspect]
     Indication: INFANTILE SPASMS
     Dosage: 1400 mg, Daily
     Route: 064
     Dates: end: 20100317

REACTIONS (17)
  - Foetal growth restriction [Unknown]
  - Low birth weight baby [Unknown]
  - Hypotonia [Unknown]
  - Failure to thrive [Not Recovered/Not Resolved]
  - Respiratory disorder [Unknown]
  - Foetal anticonvulsant syndrome [Unknown]
  - Atrial septal defect [Unknown]
  - Wrist deformity [Unknown]
  - Ventricular septal defect [Unknown]
  - Patent ductus arteriosus [Unknown]
  - Limb reduction defect [Unknown]
  - Joint contracture [Unknown]
  - Hypertelorism of orbit [Unknown]
  - Nose deformity [Unknown]
  - Ear malformation [Unknown]
  - Lip disorder [Unknown]
  - Growth retardation [Unknown]
